FAERS Safety Report 7585434-9 (Version None)
Quarter: 2011Q3

REPORT INFORMATION
  Report Type: 
  Country: None (occurrence: None)
  Receive Date: 20110701
  Receipt Date: 20110622
  Transmission Date: 20111222
  Serious: Yes (Hospitalization, Other)
  Sender: FDA-Public Use
  Company Number: US-BAYER-201034583NA

PATIENT
  Age: 35 Year
  Sex: Female
  Weight: 95.238 kg

DRUGS (11)
  1. YASMIN [Suspect]
     Indication: CONTRACEPTION
     Dosage: UNK
     Route: 048
     Dates: start: 20030201, end: 20031101
  2. YASMIN [Suspect]
  3. YAZ [Suspect]
     Indication: CONTRACEPTION
     Dosage: UNK
     Route: 048
     Dates: start: 20071001, end: 20080801
  4. YASMIN [Suspect]
     Indication: PREMENSTRUAL SYNDROME
     Dosage: UNK
     Dates: start: 20050701, end: 20070401
  5. DROSPIRENONE AND ETHINYL ESTRADIOL [Suspect]
     Indication: PREMENSTRUAL SYNDROME
  6. DROSPIRENONE AND ETHINYL ESTRADIOL [Suspect]
  7. YAZ [Suspect]
     Indication: PREMENSTRUAL SYNDROME
  8. DROSPIRENONE AND ETHINYL ESTRADIOL [Suspect]
     Indication: CONTRACEPTION
     Dosage: UNK
     Dates: start: 20081101, end: 20091001
  9. YAZ [Suspect]
  10. NSAID'S [Concomitant]
  11. OMEPRAZOLE [Concomitant]
     Dosage: UNK
     Dates: start: 20080901

REACTIONS (5)
  - ANXIETY [None]
  - SUBARACHNOID HAEMORRHAGE [None]
  - CEREBROVASCULAR ACCIDENT [None]
  - INTRACRANIAL ANEURYSM [None]
  - DEPRESSION [None]
